FAERS Safety Report 22657271 (Version 1)
Quarter: 2023Q2

REPORT INFORMATION
  Report Type: Report from Study
  Country: JP (occurrence: JP)
  Receive Date: 20230630
  Receipt Date: 20230630
  Transmission Date: 20230722
  Serious: Yes (Death)
  Sender: FDA-Public Use
  Company Number: JP-SERVIER-S23007070

PATIENT
  Age: 69 Year
  Sex: Female
  Weight: 41.1 kg

DRUGS (42)
  1. ONIVYDE [Suspect]
     Active Substance: IRINOTECAN HYDROCHLORIDE
     Indication: Pancreatic carcinoma
     Dosage: 55 MG/M2
     Route: 065
     Dates: start: 20211101, end: 20211101
  2. ONIVYDE [Suspect]
     Active Substance: IRINOTECAN HYDROCHLORIDE
     Dosage: 55 MG/M2
     Route: 065
     Dates: start: 20211115, end: 20211115
  3. ONIVYDE [Suspect]
     Active Substance: IRINOTECAN HYDROCHLORIDE
     Dosage: 55 MG/M2
     Route: 065
     Dates: start: 20211129, end: 20211129
  4. ONIVYDE [Suspect]
     Active Substance: IRINOTECAN HYDROCHLORIDE
     Dosage: 55 MG/M2
     Route: 065
     Dates: start: 20211213, end: 20211213
  5. ONIVYDE [Suspect]
     Active Substance: IRINOTECAN HYDROCHLORIDE
     Dosage: 55 MG/M2
     Route: 065
     Dates: start: 20211227, end: 20211227
  6. ONIVYDE [Suspect]
     Active Substance: IRINOTECAN HYDROCHLORIDE
     Dosage: 55 MG/M2
     Route: 065
     Dates: start: 20220117, end: 20220117
  7. ONIVYDE [Suspect]
     Active Substance: IRINOTECAN HYDROCHLORIDE
     Dosage: 55 MG/M2
     Route: 065
     Dates: start: 20220131, end: 20220131
  8. ONIVYDE [Suspect]
     Active Substance: IRINOTECAN HYDROCHLORIDE
     Dosage: 55 MG/M2
     Route: 065
     Dates: start: 20220214, end: 20220214
  9. ONIVYDE [Suspect]
     Active Substance: IRINOTECAN HYDROCHLORIDE
     Dosage: 55 MG/M2
     Route: 065
     Dates: start: 20220228, end: 20220228
  10. ONIVYDE [Suspect]
     Active Substance: IRINOTECAN HYDROCHLORIDE
     Dosage: 55 MG/M2
     Route: 065
     Dates: start: 20220314, end: 20220314
  11. ONIVYDE [Suspect]
     Active Substance: IRINOTECAN HYDROCHLORIDE
     Dosage: 55 MG/M2
     Route: 065
     Dates: start: 20220328, end: 20220328
  12. ONIVYDE [Suspect]
     Active Substance: IRINOTECAN HYDROCHLORIDE
     Dosage: 55 MG/M2
     Route: 065
     Dates: start: 20220411, end: 20220411
  13. ONIVYDE [Suspect]
     Active Substance: IRINOTECAN HYDROCHLORIDE
     Dosage: 55 MG/M2
     Route: 065
     Dates: start: 20220502, end: 20220502
  14. LEVOLEUCOVORIN CALCIUM [Concomitant]
     Active Substance: LEVOLEUCOVORIN CALCIUM
     Indication: Pancreatic carcinoma
     Dosage: 200 MG/M2
     Route: 065
     Dates: start: 20211101, end: 20211101
  15. LEVOLEUCOVORIN CALCIUM [Concomitant]
     Active Substance: LEVOLEUCOVORIN CALCIUM
     Dosage: 200 MG/M2
     Route: 065
     Dates: start: 20211115, end: 20211115
  16. LEVOLEUCOVORIN CALCIUM [Concomitant]
     Active Substance: LEVOLEUCOVORIN CALCIUM
     Dosage: 200 MG/M2
     Route: 065
     Dates: start: 20211129, end: 20211129
  17. LEVOLEUCOVORIN CALCIUM [Concomitant]
     Active Substance: LEVOLEUCOVORIN CALCIUM
     Dosage: 200 MG/M2
     Route: 065
     Dates: start: 20211213, end: 20211213
  18. LEVOLEUCOVORIN CALCIUM [Concomitant]
     Active Substance: LEVOLEUCOVORIN CALCIUM
     Dosage: 200 MG/M2
     Route: 065
     Dates: start: 20211227, end: 20211227
  19. LEVOLEUCOVORIN CALCIUM [Concomitant]
     Active Substance: LEVOLEUCOVORIN CALCIUM
     Dosage: 200 MG/M2
     Route: 065
     Dates: start: 20220117, end: 20220117
  20. LEVOLEUCOVORIN CALCIUM [Concomitant]
     Active Substance: LEVOLEUCOVORIN CALCIUM
     Dosage: 200 MG/M2
     Route: 065
     Dates: start: 20220131, end: 20220131
  21. LEVOLEUCOVORIN CALCIUM [Concomitant]
     Active Substance: LEVOLEUCOVORIN CALCIUM
     Dosage: 200 MG/M2
     Route: 065
     Dates: start: 20220214, end: 20220214
  22. LEVOLEUCOVORIN CALCIUM [Concomitant]
     Active Substance: LEVOLEUCOVORIN CALCIUM
     Dosage: 200 MG/M2
     Route: 065
     Dates: start: 20220228, end: 20220228
  23. LEVOLEUCOVORIN CALCIUM [Concomitant]
     Active Substance: LEVOLEUCOVORIN CALCIUM
     Dosage: 200 MG/M2
     Route: 065
     Dates: start: 20220314, end: 20220314
  24. LEVOLEUCOVORIN CALCIUM [Concomitant]
     Active Substance: LEVOLEUCOVORIN CALCIUM
     Dosage: 200 MG/M2
     Route: 065
     Dates: start: 20220328, end: 20220328
  25. LEVOLEUCOVORIN CALCIUM [Concomitant]
     Active Substance: LEVOLEUCOVORIN CALCIUM
     Dosage: 200 MG/M2
     Route: 065
     Dates: start: 20220411, end: 20220411
  26. LEVOLEUCOVORIN CALCIUM [Concomitant]
     Active Substance: LEVOLEUCOVORIN CALCIUM
     Dosage: 200 MG/M2
     Route: 065
     Dates: start: 20220502, end: 20220502
  27. FLUOROURACIL [Concomitant]
     Active Substance: FLUOROURACIL
     Indication: Pancreatic carcinoma
     Dosage: 1820 MG/M2
     Route: 065
     Dates: start: 20211101, end: 20211103
  28. FLUOROURACIL [Concomitant]
     Active Substance: FLUOROURACIL
     Dosage: 1820 MG/M2
     Route: 065
     Dates: start: 20211115, end: 20211117
  29. FLUOROURACIL [Concomitant]
     Active Substance: FLUOROURACIL
     Dosage: 1820 MG/M2
     Route: 065
     Dates: start: 20211129, end: 20211201
  30. FLUOROURACIL [Concomitant]
     Active Substance: FLUOROURACIL
     Dosage: 1820 MG/M2
     Route: 065
     Dates: start: 20211213, end: 20211215
  31. FLUOROURACIL [Concomitant]
     Active Substance: FLUOROURACIL
     Dosage: 1820 MG/M2
     Route: 065
     Dates: start: 20211227, end: 20211229
  32. FLUOROURACIL [Concomitant]
     Active Substance: FLUOROURACIL
     Dosage: 1820 MG/M2
     Route: 065
     Dates: start: 20220117, end: 20220119
  33. FLUOROURACIL [Concomitant]
     Active Substance: FLUOROURACIL
     Dosage: 1820 MG/M2
     Route: 065
     Dates: start: 20220131, end: 20220202
  34. FLUOROURACIL [Concomitant]
     Active Substance: FLUOROURACIL
     Dosage: 1820 MG/M2
     Route: 065
     Dates: start: 20220214, end: 20220216
  35. FLUOROURACIL [Concomitant]
     Active Substance: FLUOROURACIL
     Dosage: 1820 MG/M2
     Route: 065
     Dates: start: 20220228, end: 20220302
  36. FLUOROURACIL [Concomitant]
     Active Substance: FLUOROURACIL
     Dosage: 1820 MG/M2
     Route: 065
     Dates: start: 20220314, end: 20220316
  37. FLUOROURACIL [Concomitant]
     Active Substance: FLUOROURACIL
     Dosage: 1820 MG/M2
     Route: 065
     Dates: start: 20220328, end: 20220330
  38. FLUOROURACIL [Concomitant]
     Active Substance: FLUOROURACIL
     Dosage: 1820 MG/M2
     Route: 065
     Dates: start: 20220411, end: 20220413
  39. FLUOROURACIL [Concomitant]
     Active Substance: FLUOROURACIL
     Dosage: 1820 MG/M2
     Route: 065
     Dates: start: 20220502, end: 20220502
  40. PALONOSETRON HYDROCHLORIDE [Concomitant]
     Active Substance: PALONOSETRON HYDROCHLORIDE
     Indication: Chemotherapy side effect prophylaxis
     Dosage: UNK
     Route: 065
  41. DEXAMETHASONE [Concomitant]
     Active Substance: DEXAMETHASONE
     Indication: Chemotherapy side effect prophylaxis
     Dosage: UNK
     Route: 065
  42. APREPITANT [Concomitant]
     Active Substance: APREPITANT
     Indication: Chemotherapy side effect prophylaxis
     Dosage: UNK
     Route: 048

REACTIONS (2)
  - Death [Fatal]
  - Off label use [Unknown]

NARRATIVE: CASE EVENT DATE: 20211101
